FAERS Safety Report 9852942 (Version 3)
Quarter: 2014Q1

REPORT INFORMATION
  Report Type: Spontaneous
  Country: ZA (occurrence: ZA)
  Receive Date: 20140129
  Receipt Date: 20140207
  Transmission Date: 20141002
  Serious: Yes (Life-Threatening, Hospitalization)
  Sender: FDA-Public Use
  Company Number: ZA-ALLERGAN-1400735US

PATIENT
  Age: 41 Year
  Sex: Female

DRUGS (1)
  1. BOTOX [Suspect]
     Indication: SKIN WRINKLING
     Dosage: 24 UNITS, SINGLE
     Route: 030
     Dates: start: 201312, end: 201312

REACTIONS (2)
  - Cardiac arrest [Recovered/Resolved]
  - Anaphylactic shock [Recovered/Resolved]
